FAERS Safety Report 5413238-1 (Version None)
Quarter: 2007Q3

REPORT INFORMATION
  Report Type: 
  Country: None (occurrence: None)
  Receive Date: 20070716
  Receipt Date: 20070501
  Transmission Date: 20080115
  Serious: Yes (Hospitalization)
  Sender: FDA-Public Use
  Company Number: IMP_02838_2007

PATIENT
  Age: 25 Year
  Sex: Female

DRUGS (1)
  1. BUDEPRION [Suspect]
     Indication: DEPRESSION
     Dosage: (300 MG QD ORAL)
     Route: 048
     Dates: start: 20070201

REACTIONS (1)
  - CONVULSION [None]
